FAERS Safety Report 16500998 (Version 1)
Quarter: 2019Q3

REPORT INFORMATION
  Report Type: Spontaneous
  Country: US (occurrence: US)
  Receive Date: 20190628
  Receipt Date: 20190628
  Transmission Date: 20191004
  Serious: No
  Sender: FDA-Public Use
  Company Number: None

PATIENT
  Sex: Female

DRUGS (16)
  1. FERROUS SULFATE. [Concomitant]
     Active Substance: FERROUS SULFATE
  2. IPRATROPIUM [Concomitant]
     Active Substance: IPRATROPIUM
  3. QVAR [Concomitant]
     Active Substance: BECLOMETHASONE DIPROPIONATE
  4. METOPROLOL. [Concomitant]
     Active Substance: METOPROLOL
  5. VITAMIN D3 [Concomitant]
     Active Substance: CHOLECALCIFEROL
  6. FAMOTIDINE. [Concomitant]
     Active Substance: FAMOTIDINE
  7. ACETYLCYST [Concomitant]
  8. FLOVENT [Concomitant]
     Active Substance: FLUTICASONE PROPIONATE
  9. CETIRIZINE [Concomitant]
     Active Substance: CETIRIZINE HYDROCHLORIDE
  10. PROVENTIL [Concomitant]
     Active Substance: ALBUTEROL
  11. CREON [Suspect]
     Active Substance: PANCRELIPASE AMYLASE\PANCRELIPASE LIPASE\PANCRELIPASE PROTEASE
     Indication: PANCREATITIS ACUTE
     Route: 048
  12. GABAPENTIN. [Concomitant]
     Active Substance: GABAPENTIN
  13. RELPAX [Concomitant]
     Active Substance: ELETRIPTAN HYDROBROMIDE
  14. FEROSUL [Concomitant]
  15. TOBRAMYCIN. [Concomitant]
     Active Substance: TOBRAMYCIN
  16. LEVOFLOXACIN. [Concomitant]
     Active Substance: LEVOFLOXACIN

REACTIONS (1)
  - Product dispensing error [None]
